FAERS Safety Report 4391172-6 (Version None)
Quarter: 2004Q3

REPORT INFORMATION
  Report Type: 
  Country: None (occurrence: None)
  Receive Date: 20040707
  Receipt Date: 20020516
  Transmission Date: 20050211
  Serious: Yes (Hospitalization)
  Sender: FDA-Public Use
  Company Number: US-MERCK-0205USA02027

PATIENT
  Age: 66 Year
  Sex: Female
  Weight: 125 kg

DRUGS (14)
  1. FLEXERIL [Concomitant]
     Route: 065
  2. VASOTEC [Concomitant]
     Indication: HYPERTENSION
     Route: 065
     Dates: start: 19870101
  3. LASIX [Concomitant]
     Route: 065
  4. GLIPIZIDE [Concomitant]
     Indication: DIABETES MELLITUS
     Route: 065
  5. ACTOS [Concomitant]
     Indication: DIABETES MELLITUS
     Route: 065
  6. K-DUR 10 [Concomitant]
     Route: 065
  7. ALTACE [Concomitant]
     Route: 065
  8. VIOXX [Suspect]
     Indication: OSTEOARTHRITIS
     Route: 048
     Dates: start: 20010101, end: 20010724
  9. VIOXX [Suspect]
     Route: 048
     Dates: start: 20010731
  10. VIOXX [Suspect]
     Route: 048
     Dates: start: 19991004, end: 20000101
  11. VIOXX [Suspect]
     Indication: PAIN IN EXTREMITY
     Route: 048
     Dates: start: 20010101, end: 20010724
  12. VIOXX [Suspect]
     Route: 048
     Dates: start: 20010731
  13. VIOXX [Suspect]
     Route: 048
     Dates: start: 19991004, end: 20000101
  14. BRETHINE [Concomitant]
     Route: 065

REACTIONS (26)
  - ACUTE MYOCARDIAL INFARCTION [None]
  - ACUTE PRERENAL FAILURE [None]
  - ACUTE RESPIRATORY FAILURE [None]
  - ANXIETY [None]
  - ASTHENIA [None]
  - ASTHMA [None]
  - ATELECTASIS [None]
  - CARDIAC FAILURE CONGESTIVE [None]
  - CARDIAC MURMUR [None]
  - DEPRESSION [None]
  - FATIGUE [None]
  - HEART RATE INCREASED [None]
  - HEART RATE IRREGULAR [None]
  - HYPOTHYROIDISM [None]
  - INJURY [None]
  - LOCALISED OSTEOARTHRITIS [None]
  - MITRAL VALVE INCOMPETENCE [None]
  - MYOCARDIAL ISCHAEMIA [None]
  - PERICARDIAL EFFUSION [None]
  - PNEUMONIA [None]
  - PULMONARY OEDEMA [None]
  - RESPIRATORY DISORDER [None]
  - SINUS TACHYCARDIA [None]
  - SLEEP APNOEA SYNDROME [None]
  - TACHYCARDIA [None]
  - TRICUSPID VALVE INCOMPETENCE [None]
